FAERS Safety Report 7470236-4 (Version None)
Quarter: 2011Q2

REPORT INFORMATION
  Report Type: 
  Country: None (occurrence: None)
  Receive Date: 20110510
  Receipt Date: 20110503
  Transmission Date: 20111010
  Serious: Yes (Hospitalization, Other)
  Sender: FDA-Public Use
  Company Number: PHHY2011PL23719

PATIENT
  Age: 47 Year
  Sex: Female

DRUGS (1)
  1. METHYLPEDNISOLONE SODIUM SUCCINATE [Suspect]
     Indication: SARCOIDOSIS
     Dosage: 4 MG, UNK

REACTIONS (16)
  - RESPIRATORY MONILIASIS [None]
  - HAEMOPTYSIS [None]
  - PYREXIA [None]
  - BRONCHITIS BACTERIAL [None]
  - PULMONARY FIBROSIS [None]
  - PULMONARY CAVITATION [None]
  - ASPERGILLOSIS [None]
  - COUGH [None]
  - TACHYCARDIA [None]
  - LUNG INFECTION PSEUDOMONAL [None]
  - WHITE BLOOD CELL COUNT INCREASED [None]
  - LUNG NEOPLASM [None]
  - HYPOXIA [None]
  - PSEUDOMONAS TEST POSITIVE [None]
  - WEIGHT DECREASED [None]
  - C-REACTIVE PROTEIN INCREASED [None]
